FAERS Safety Report 21522044 (Version 1)
Quarter: 2022Q4

REPORT INFORMATION
  Report Type: Spontaneous
  Country: US (occurrence: None)
  Receive Date: 20221027
  Receipt Date: 20221027
  Transmission Date: 20230112
  Serious: Yes (Hospitalization)
  Sender: FDA-Public Use
  Company Number: None

PATIENT

DRUGS (1)
  1. ELIQUIS [Suspect]
     Active Substance: APIXABAN

REACTIONS (4)
  - Lactic acidosis [None]
  - Disseminated intravascular coagulation [None]
  - Shock [None]
  - General physical health deterioration [None]

NARRATIVE: CASE EVENT DATE: 20210718
